FAERS Safety Report 4484561-2 (Version None)
Quarter: 2004Q3

REPORT INFORMATION
  Report Type: 
  Country: None (occurrence: None)
  Receive Date: 20040921
  Receipt Date: 20031204
  Transmission Date: 20050211
  Serious: Yes (Other)
  Sender: FDA-Public Use
  Company Number: 163-20785-03120131(0)

PATIENT
  Age: 59 Year
  Sex: Male

DRUGS (1)
  1. THALOMID [Suspect]
     Indication: BRAIN NEOPLASM MALIGNANT
     Dosage: 400 MG, DAILY, ORAL
     Route: 048
     Dates: start: 20030828, end: 20030101

REACTIONS (4)
  - DRY SKIN [None]
  - NEUTROPENIA [None]
  - RASH [None]
  - RASH SCALY [None]
